FAERS Safety Report 9097350 (Version 1)
Quarter: 2013Q1

REPORT INFORMATION
  Report Type: Spontaneous
  Country: FR (occurrence: FR)
  Receive Date: 20130212
  Receipt Date: 20130212
  Transmission Date: 20140127
  Serious: Yes (Other)
  Sender: FDA-Public Use
  Company Number: FR-UCBSA-077727

PATIENT
  Age: 22 Year
  Sex: Female

DRUGS (9)
  1. KEPPRA [Suspect]
     Dosage: STRENGTH: 750 MG
     Route: 048
     Dates: start: 20121213
  2. KEPPRA [Suspect]
     Route: 048
     Dates: start: 20121202, end: 20121212
  3. KEPPRA [Suspect]
     Route: 048
     Dates: start: 20121123, end: 20121201
  4. DEPAKINE [Concomitant]
  5. DEPAKINE [Concomitant]
  6. RISPERDAL [Concomitant]
  7. RISPERDAL [Concomitant]
  8. DEPAKOTE [Concomitant]
  9. DEPAKOTE [Concomitant]

REACTIONS (3)
  - Agitation [Not Recovered/Not Resolved]
  - Screaming [Not Recovered/Not Resolved]
  - Aggression [Not Recovered/Not Resolved]
